FAERS Safety Report 4548593-8 (Version None)
Quarter: 2004Q4

REPORT INFORMATION
  Report Type: 
  Country: None (occurrence: None)
  Receive Date: 20041227
  Receipt Date: 20040916
  Transmission Date: 20050328
  Serious: No
  Sender: FDA-Public Use
  Company Number: 04P-163-0273512-00

PATIENT
  Age: 55 Year
  Sex: Female
  Weight: 39.0093 kg

DRUGS (7)
  1. HUMIRA [Suspect]
     Indication: RHEUMATOID ARTHRITIS
     Dosage: 40 MG, 1 IN 2 WK, SUBCUTANEOUS
     Route: 058
     Dates: start: 20040501, end: 20040801
  2. HUMIRA [Suspect]
     Indication: RHEUMATOID ARTHRITIS
     Dosage: 40 MG, 1 IN 2 WK, SUBCUTANEOUS
     Route: 058
     Dates: start: 20040801
  3. PREDNISONE [Concomitant]
  4. METHOTREXATE SODIUM [Concomitant]
  5. ESTROGENS CONJUGATED [Concomitant]
  6. LANSOPRAZOLE [Concomitant]
  7. OXYCOCET [Concomitant]

REACTIONS (3)
  - BREAST SWELLING [None]
  - BREAST TENDERNESS [None]
  - DRUG INEFFECTIVE [None]
